FAERS Safety Report 8498770-9 (Version None)
Quarter: 2012Q3

REPORT INFORMATION
  Report Type: 
  Country: None (occurrence: None)
  Receive Date: 20120709
  Receipt Date: 20120629
  Transmission Date: 20120928
  Serious: No
  Sender: FDA-Public Use
  Company Number: US-AMGEN-USASP2012040465

PATIENT
  Age: 38 Year
  Sex: Female

DRUGS (1)
  1. ENBREL [Suspect]
     Indication: RHEUMATOID ARTHRITIS
     Dosage: 50 MG, QWK
     Dates: start: 20110614

REACTIONS (5)
  - EYE IRRITATION [None]
  - RHEUMATOID ARTHRITIS [None]
  - OCULAR HYPERAEMIA [None]
  - EYE DISCHARGE [None]
  - VISION BLURRED [None]
